FAERS Safety Report 20724007 (Version 1)
Quarter: 2022Q2

REPORT INFORMATION
  Report Type: Spontaneous
  Country: CN (occurrence: CN)
  Receive Date: 20220419
  Receipt Date: 20220419
  Transmission Date: 20220721
  Serious: Yes (Hospitalization)
  Sender: FDA-Public Use
  Company Number: CN-BAXTER-2022BAX008373

PATIENT
  Age: 2 Year
  Sex: Male
  Weight: 12 kg

DRUGS (10)
  1. CYCLOPHOSPHAMIDE [Suspect]
     Active Substance: CYCLOPHOSPHAMIDE
     Indication: Acute lymphocytic leukaemia
     Dosage: CYCLOPHOSPHAMIDE FOR INJECTION 0.54G + NS 100ML
     Route: 041
     Dates: start: 20220329, end: 20220329
  2. CYCLOPHOSPHAMIDE [Suspect]
     Active Substance: CYCLOPHOSPHAMIDE
     Dosage: DOSE REINTRODUCED FOR CYCLOPHOSPHAMIDE FOR INJECTION + NS
     Route: 041
  3. SODIUM CHLORIDE [Suspect]
     Active Substance: SODIUM CHLORIDE
     Indication: Medication dilution
     Dosage: CYCLOPHOSPHAMIDE FOR INJECTION 0.54G + NS 100ML
     Route: 041
     Dates: start: 20220329, end: 20220329
  4. SODIUM CHLORIDE [Suspect]
     Active Substance: SODIUM CHLORIDE
     Dosage: DOSE REINTRODUCED FOR CYCLOPHOSPHAMIDE FOR INJECTION + NS
     Route: 041
  5. CYTARABINE [Suspect]
     Active Substance: CYTARABINE
     Indication: Acute lymphocytic leukaemia
     Dosage: CYTARABINE FOR INJECTION 0.025G + NS 50ML
     Route: 041
     Dates: start: 20220329, end: 20220404
  6. CYTARABINE [Suspect]
     Active Substance: CYTARABINE
     Dosage: DOSE REINTRODUCED CYTARABINE FOR INJECTION + NS
     Route: 041
  7. MERCAPTOPURINE [Suspect]
     Active Substance: MERCAPTOPURINE
     Indication: Acute lymphocytic leukaemia
     Route: 048
     Dates: start: 20220329, end: 20220404
  8. MERCAPTOPURINE [Suspect]
     Active Substance: MERCAPTOPURINE
     Dosage: DOSE REINTRODUCED
     Route: 048
  9. SODIUM CHLORIDE [Suspect]
     Active Substance: SODIUM CHLORIDE
     Indication: Medication dilution
     Dosage: CYTARABINE FOR INJECTION 0.025G + NS 50ML
     Route: 041
     Dates: start: 20220329, end: 20220404
  10. SODIUM CHLORIDE [Suspect]
     Active Substance: SODIUM CHLORIDE
     Dosage: DOSE REINTRODUCED FOR CYTARABINE FOR INJECTION  + NS
     Route: 041

REACTIONS (2)
  - Hypofibrinogenaemia [Unknown]
  - Platelet count decreased [Recovering/Resolving]

NARRATIVE: CASE EVENT DATE: 20220410
